FAERS Safety Report 25912377 (Version 1)
Quarter: 2025Q4

REPORT INFORMATION
  Report Type: Spontaneous
  Country: US (occurrence: US)
  Receive Date: 20251013
  Receipt Date: 20251013
  Transmission Date: 20260117
  Serious: No
  Sender: ALEXION PHARMACEUTICALS
  Company Number: US-AstraZeneca-CH-00965205AP

PATIENT
  Sex: Male

DRUGS (3)
  1. BREZTRI [Suspect]
     Active Substance: BUDESONIDE\FORMOTEROL\GLYCOPYRROLATE
     Indication: Chronic obstructive pulmonary disease
     Dosage: 2 PUFFS DAILY
     Route: 065
  2. BREZTRI [Suspect]
     Active Substance: BUDESONIDE\FORMOTEROL\GLYCOPYRROLATE
     Indication: Asthma
  3. BRILINTA [Suspect]
     Active Substance: TICAGRELOR
     Indication: Blood pressure measurement
     Route: 065

REACTIONS (5)
  - Drug dose omission by device [Unknown]
  - Dyspnoea [Unknown]
  - Product administration error [Unknown]
  - Muscle spasms [Unknown]
  - Wrong technique in device usage process [Unknown]
